FAERS Safety Report 18119708 (Version 1)
Quarter: 2020Q3

REPORT INFORMATION
  Report Type: Spontaneous
  Country: CN (occurrence: CN)
  Receive Date: 20200806
  Receipt Date: 20200806
  Transmission Date: 20201103
  Serious: Yes (Life-Threatening, Hospitalization)
  Sender: FDA-Public Use
  Company Number: CN-PFIZER INC-2020296451

PATIENT
  Age: 51 Year
  Sex: Male
  Weight: 70 kg

DRUGS (1)
  1. TIGECYCLINE. [Suspect]
     Active Substance: TIGECYCLINE
     Indication: ABDOMINAL INFECTION
     Dosage: 50 MG, 2X/DAY
     Route: 041
     Dates: start: 20200623, end: 20200628

REACTIONS (2)
  - Diarrhoea infectious [Recovering/Resolving]
  - Diarrhoea [Recovering/Resolving]

NARRATIVE: CASE EVENT DATE: 20200628
